FAERS Safety Report 26077976 (Version 1)
Quarter: 2025Q4

REPORT INFORMATION
  Report Type: Spontaneous
  Country: US (occurrence: US)
  Receive Date: 20251122
  Receipt Date: 20251122
  Transmission Date: 20260118
  Serious: Yes (Other)
  Sender: MDD OPERATIONS
  Company Number: US-002147023-MDD202507-002758

PATIENT
  Age: 78 Year
  Sex: Male

DRUGS (4)
  1. APOKYN [Suspect]
     Active Substance: APOMORPHINE HYDROCHLORIDE
     Indication: Parkinson^s disease
     Route: 058
     Dates: start: 20250715
  2. ONAPGO [Suspect]
     Active Substance: APOMORPHINE HYDROCHLORIDE
     Indication: Parkinson^s disease
     Dosage: 16 HOURS A DAY
  3. ONAPGO [Suspect]
     Active Substance: APOMORPHINE HYDROCHLORIDE
     Indication: Dyskinesia
     Dosage: ONE CARTRIDGE PER DAY 16 HOURS OR LESS EACH DAY. CONTINUOUS DOSE (MAXIMUM 6MG PER HOUR OR 98MG PER D
     Dates: start: 202508
  4. ONAPGO [Suspect]
     Active Substance: APOMORPHINE HYDROCHLORIDE
     Indication: On and off phenomenon
     Dosage: 16 HOURS A DAY
     Dates: start: 202510

REACTIONS (6)
  - Hallucination [Unknown]
  - Dizziness [Unknown]
  - Somnolence [Unknown]
  - Fall [Recovered/Resolved]
  - Injection site bruising [Recovered/Resolved]
  - Nausea [Recovered/Resolved]

NARRATIVE: CASE EVENT DATE: 20250718
